FAERS Safety Report 17202051 (Version 1)
Quarter: 2019Q4

REPORT INFORMATION
  Report Type: Spontaneous
  Country: CA (occurrence: CA)
  Receive Date: 20191226
  Receipt Date: 20191226
  Transmission Date: 20200122
  Serious: Yes (Disabling)
  Sender: FDA-Public Use
  Company Number: CA-TEVA-2019-CA-1156406

PATIENT
  Age: 61 Year
  Sex: Female

DRUGS (1)
  1. PREGABALIN. [Suspect]
     Active Substance: PREGABALIN
     Indication: DIABETIC NEUROPATHY
     Dosage: 75 MILLIGRAM DAILY;
     Route: 048

REACTIONS (3)
  - Confusional state [Recovered/Resolved]
  - Speech disorder [Recovered/Resolved]
  - Mobility decreased [Recovered/Resolved]
